FAERS Safety Report 7000322-4 (Version None)
Quarter: 2010Q3

REPORT INFORMATION
  Report Type: 
  Country: None (occurrence: None)
  Receive Date: 20100920
  Receipt Date: 20100222
  Transmission Date: 20110219
  Serious: No
  Sender: FDA-Public Use
  Company Number: US-ASTRAZENECA-2010SE07636

PATIENT
  Sex: Female
  Weight: 83.9 kg

DRUGS (4)
  1. SEROQUEL [Suspect]
     Indication: SLEEP DISORDER
     Route: 048
     Dates: start: 20050101, end: 20100207
  2. TRILEPTAL [Suspect]
     Indication: BIPOLAR DISORDER
     Route: 048
  3. TRILEPTAL [Suspect]
     Route: 048
     Dates: start: 20100218
  4. LISINOPRIL [Concomitant]

REACTIONS (5)
  - DRUG DOSE OMISSION [None]
  - HEADACHE [None]
  - INSOMNIA [None]
  - NAUSEA [None]
  - NERVOUSNESS [None]
